FAERS Safety Report 5193557-7 (Version None)
Quarter: 2006Q4

REPORT INFORMATION
  Report Type: 
  Country: None (occurrence: None)
  Receive Date: 20061228
  Receipt Date: 20060814
  Transmission Date: 20070319
  Serious: No
  Sender: FDA-Public Use
  Company Number: US-GLAXOSMITHKLINE-A0616531A

PATIENT

DRUGS (3)
  1. FLUTICASONE PROPIONATE [Suspect]
     Route: 045
  2. ALLEGRA [Concomitant]
  3. LENOXIN [Concomitant]

REACTIONS (2)
  - DRUG INEFFECTIVE [None]
  - HEADACHE [None]
